FAERS Safety Report 5770226-3 (Version None)
Quarter: 2008Q2

REPORT INFORMATION
  Report Type: 
  Country: None (occurrence: None)
  Receive Date: 20080613
  Receipt Date: 20080428
  Transmission Date: 20081010
  Serious: No
  Sender: FDA-Public Use
  Company Number: US-ABBOTT-08P-163-0449562-00

PATIENT
  Sex: Female
  Weight: 72.64 kg

DRUGS (10)
  1. HUMIRA [Suspect]
     Indication: RHEUMATOID ARTHRITIS
     Route: 058
     Dates: start: 20060901
  2. ASPIRIN [Concomitant]
     Indication: PROPHYLAXIS
     Route: 048
     Dates: start: 20080201
  3. METHOTREXATE [Concomitant]
     Indication: RHEUMATOID ARTHRITIS
     Dosage: FOUR- 2.5 MG TABLETS WEEKLY
     Route: 048
     Dates: start: 20030101
  4. FOLIC ACID [Concomitant]
     Indication: VITAMIN SUPPLEMENTATION
     Dosage: FOUR - 1MG DAILY
     Route: 048
  5. SULFAZINE EC [Concomitant]
     Indication: RHEUMATOID ARTHRITIS
     Dosage: TWO PILLS 2X DAILY
     Route: 048
  6. PREDINSONE [Concomitant]
     Indication: RHEUMATOID ARTHRITIS
     Dosage: ONE PILL DAILY
     Route: 048
  7. CHLORINE MAG TRIFAL [Concomitant]
     Indication: SUPPLEMENTATION THERAPY
     Dosage: 500 MG 2 PILLS 2X DAILY
     Route: 048
  8. PROPACET 100 [Concomitant]
     Indication: PAIN
     Route: 048
  9. CALCIUM WITH VITAMIN D [Concomitant]
     Indication: MINERAL SUPPLEMENTATION
     Route: 048
  10. VITAMIN CAP [Concomitant]
     Indication: VITAMIN SUPPLEMENTATION
     Route: 048

REACTIONS (7)
  - CHEST PAIN [None]
  - HYPOAESTHESIA [None]
  - INJECTION SITE HAEMORRHAGE [None]
  - INJECTION SITE IRRITATION [None]
  - NERVOUSNESS [None]
  - PARAESTHESIA [None]
  - PROCEDURAL COMPLICATION [None]
